FAERS Safety Report 18271948 (Version 1)
Quarter: 2020Q3

REPORT INFORMATION
  Report Type: Spontaneous
  Country: US (occurrence: US)
  Receive Date: 20200909
  Receipt Date: 20200909
  Transmission Date: 20201103
  Serious: Yes (Other)
  Sender: FDA-Public Use
  Company Number: None

PATIENT
  Age: 54 Year
  Sex: Male
  Weight: 98.1 kg

DRUGS (9)
  1. BLUMEN CLEAR ADVANCED HAND SANITIZER [Suspect]
     Active Substance: ALCOHOL
     Indication: COVID-19 PROPHYLAXIS
     Dosage: ?          OTHER FREQUENCY:MANY TIMES PER DAY;?
     Route: 061
  2. ANASTROZOLE. [Concomitant]
     Active Substance: ANASTROZOLE
  3. MULTIVITAMIN [Concomitant]
     Active Substance: VITAMINS
  4. AMINO ACIDS [Concomitant]
     Active Substance: AMINO ACIDS, SOURCE UNSPECIFIED
  5. HERBS [Concomitant]
     Active Substance: HERBALS
  6. MULTIMINERAL [Concomitant]
  7. TESTOSTERONE INJECTION [Concomitant]
     Active Substance: TESTOSTERONE
  8. VITAMIN D3 [Concomitant]
     Active Substance: CHOLECALCIFEROL
  9. METFORMIN [Concomitant]
     Active Substance: METFORMIN HYDROCHLORIDE

REACTIONS (5)
  - Nail disorder [None]
  - Product quality issue [None]
  - Pain [None]
  - Nail atrophy [None]
  - Onychoclasis [None]

NARRATIVE: CASE EVENT DATE: 20200817
